FAERS Safety Report 7799464-5 (Version None)
Quarter: 2011Q4

REPORT INFORMATION
  Report Type: 
  Country: None (occurrence: None)
  Receive Date: 20111006
  Receipt Date: 20110930
  Transmission Date: 20120403
  Serious: Yes (Hospitalization, Other)
  Sender: FDA-Public Use
  Company Number: PHHY2010JP59471

PATIENT
  Sex: Male

DRUGS (14)
  1. ASPIRIN [Concomitant]
     Dosage: 1 DF, UNK
     Route: 048
     Dates: start: 20100101
  2. ZOMETA [Concomitant]
     Route: 041
  3. ISODINE GARGLE [Concomitant]
     Indication: PROPHYLAXIS
     Route: 048
  4. ISODINE GARGLE [Concomitant]
     Route: 048
  5. ZOMETA [Concomitant]
     Indication: METASTATIC RENAL CELL CARCINOMA
     Dosage: UNK
     Route: 041
     Dates: start: 20091218
  6. ZOMETA [Concomitant]
     Route: 041
  7. SALOBEL [Concomitant]
     Dosage: 1 DF, UNK
     Route: 048
     Dates: start: 20090323
  8. CANDESARTAN CILEXETIL [Concomitant]
     Dosage: 2 DF, UNK
     Route: 048
     Dates: start: 20091225
  9. MARZULENE S [Concomitant]
     Dosage: 3 G, UNK
     Route: 048
     Dates: start: 20100101
  10. AFINITOR [Suspect]
     Indication: METASTATIC RENAL CELL CARCINOMA
     Dosage: 10 MG, DAILY
     Route: 048
     Dates: start: 20100507
  11. ZOMETA [Concomitant]
     Route: 041
  12. ZOMETA [Concomitant]
     Route: 041
  13. CARNACULIN [Concomitant]
     Dosage: 3 DF, UNK
     Route: 048
     Dates: start: 20100101
  14. PAZOPANIB [Concomitant]
     Dosage: 800 MG
     Route: 048
     Dates: start: 20090325, end: 20090430

REACTIONS (8)
  - NEOPLASM PROGRESSION [None]
  - NEOPLASM MALIGNANT [None]
  - HYPERTENSION [None]
  - METASTASES TO BONE [None]
  - MUSCULOSKELETAL PAIN [None]
  - CONDITION AGGRAVATED [None]
  - LYMPHOCYTE COUNT DECREASED [None]
  - BONE PAIN [None]
